FAERS Safety Report 18655415 (Version 1)
Quarter: 2020Q4

REPORT INFORMATION
  Report Type: Spontaneous
  Country: US (occurrence: US)
  Receive Date: 20201223
  Receipt Date: 20201223
  Transmission Date: 20210114
  Serious: Yes (Other)
  Sender: FDA-Public Use
  Company Number: US-ASTRAZENECA-2020SF70878

PATIENT
  Sex: Male
  Weight: 109.8 kg

DRUGS (3)
  1. WARAFARIN [Concomitant]
     Indication: ANTICOAGULANT THERAPY
  2. SYMBICORT [Suspect]
     Active Substance: BUDESONIDE\FORMOTEROL FUMARATE DIHYDRATE
     Indication: ASTHMA
     Dosage: 160/4.5 MCG, INHALATION, 2 PUFFS TWO TIMES A DAY
     Route: 055
  3. FLOMAX [Concomitant]
     Active Substance: TAMSULOSIN HYDROCHLORIDE
     Indication: RENAL DISORDER

REACTIONS (4)
  - Wrong technique in device usage process [Unknown]
  - Device delivery system issue [Unknown]
  - Intentional device misuse [Unknown]
  - Tongue cancer recurrent [Unknown]
